FAERS Safety Report 17632327 (Version 1)
Quarter: 2020Q2

REPORT INFORMATION
  Report Type: Spontaneous
  Country: GB (occurrence: GB)
  Receive Date: 20200406
  Receipt Date: 20200406
  Transmission Date: 20200713
  Serious: Yes (Death, Other)
  Sender: FDA-Public Use
  Company Number: NVSC2020GB092925

PATIENT
  Age: 70 Year
  Sex: Male

DRUGS (2)
  1. METHYLPREDNISOLONE. [Suspect]
     Active Substance: METHYLPREDNISOLONE
     Indication: PULMONARY VASCULITIS
     Dosage: 1000 MG, QD (HIGH DOSE)
     Route: 065
  2. RITUXIMAB. [Suspect]
     Active Substance: RITUXIMAB
     Indication: PULMONARY VASCULITIS
     Dosage: 375 MG/M2, QW
     Route: 065

REACTIONS (3)
  - Pulmonary vasculitis [Unknown]
  - Condition aggravated [Fatal]
  - Product use in unapproved indication [Unknown]
